FAERS Safety Report 7808466 (Version 11)
Quarter: 2014Q2

REPORT INFORMATION
  Report Type: Spontaneous
  Country: DE (occurrence: None)
  Receive Date: 20101217
  Receipt Date: 20140630
  Transmission Date: 20141212
  Serious: Yes (Other)
  Sender: FDA-Public Use
  Company Number: AUR-APL-2010-03116

PATIENT
  Age: 73 Year
  Sex: Male
  Weight: 77.9 kg

DRUGS (4)
  1. TERBINAFINE [Suspect]
     Indication: ONYCHOMYCOSIS
     Dosage: 250 MG (250 MG, 1 IN 1 D), ORAL
     Route: 048
     Dates: start: 201008, end: 20100908
  2. REMINYL [Concomitant]
  3. RAMIPRIL (RAMIPRIL) [Concomitant]
  4. RISPERIDONE (RISPERIDONE) [Concomitant]

REACTIONS (8)
  - Rash generalised [None]
  - Petechiae [None]
  - Cyanosis [None]
  - Skin fissures [None]
  - Skin haemorrhage [None]
  - Skin exfoliation [None]
  - Raynaud^s phenomenon [None]
  - Skin fissures [None]
